FAERS Safety Report 5113489-X (Version None)
Quarter: 2006Q3

REPORT INFORMATION
  Report Type: 
  Country: None (occurrence: None)
  Receive Date: 20060921
  Receipt Date: 20060921
  Transmission Date: 20061208
  Serious: Yes (Hospitalization)
  Sender: FDA-Public Use
  Company Number: None

PATIENT
  Sex: Male

DRUGS (2)
  1. GLEEVEC [Suspect]
     Indication: GLIOBLASTOMA MULTIFORME
     Dosage: 500 MG QD
     Dates: start: 20060627, end: 20060913
  2. HYDROXYUREA [Suspect]
     Dosage: 500 MG BID

REACTIONS (6)
  - ANTICONVULSANT DRUG LEVEL BELOW THERAPEUTIC [None]
  - CONVULSION [None]
  - DISEASE PROGRESSION [None]
  - LETHARGY [None]
  - MENTAL STATUS CHANGES [None]
  - SPEECH DISORDER [None]
